FAERS Safety Report 8634004 (Version 3)
Quarter: 2014Q1

REPORT INFORMATION
  Report Type: Spontaneous
  Country: US (occurrence: US)
  Receive Date: 20120626
  Receipt Date: 20140131
  Transmission Date: 20141002
  Serious: Yes (Hospitalization, Disabling, Other)
  Sender: FDA-Public Use
  Company Number: US-ASTRAZENECA-2012SE35847

PATIENT
  Age: 19330 Day
  Sex: Female
  Weight: 66.2 kg

DRUGS (12)
  1. METHIMAZOLE [Concomitant]
     Dates: start: 20120719
  2. ATORVASTATIN [Concomitant]
     Indication: BLOOD CHOLESTEROL ABNORMAL
     Dates: start: 20120719
  3. ZOLPIDEM [Concomitant]
     Indication: SLEEP DISORDER
     Route: 048
     Dates: start: 20120719
  4. NEXIUM [Suspect]
     Indication: GASTROOESOPHAGEAL REFLUX DISEASE
     Route: 048
     Dates: start: 20061002, end: 2010
  5. NEXIUM [Suspect]
     Indication: GASTROINTESTINAL DISORDER
     Route: 048
     Dates: start: 20061002, end: 2010
  6. NEXIUM [Suspect]
     Indication: GASTROOESOPHAGEAL REFLUX DISEASE
     Route: 048
     Dates: start: 20061002, end: 2010
  7. ATENOLOL [Concomitant]
     Dates: start: 20090120
  8. FLECAINIDE ACETATE [Concomitant]
     Dates: start: 20091209
  9. NITROFURANTOIN [Concomitant]
     Dosage: WITH FOOD
     Route: 048
     Dates: start: 20061002
  10. GLUCOSAMINE-CHONDROITIN [Concomitant]
     Dosage: TAKE 1 TO 2 CAPSULE BY MOUTH ONE TIME PER DAY
     Dates: start: 20100719
  11. MULTIVITAMIN [Concomitant]
     Dosage: PER ORAL,1/2 TABLET DAILY
     Dates: start: 20100719
  12. ASPIRIN-CAFFEINE-BUTALBITAL [Concomitant]
     Dosage: 325MG-40MG-50MG TAKE ONE CAPSULE BY MOUTH
     Dates: start: 20100719

REACTIONS (18)
  - Mitral valve disease [Unknown]
  - Fibula fracture [Unknown]
  - Joint injury [Unknown]
  - Fall [Unknown]
  - Foot fracture [Unknown]
  - Osteoporosis [Unknown]
  - Multiple fractures [Unknown]
  - Carpal tunnel syndrome [Unknown]
  - Hand fracture [Unknown]
  - Anxiety [Unknown]
  - Arrhythmia [Unknown]
  - Cataract [Unknown]
  - Thyroid disorder [Unknown]
  - Supraventricular tachycardia [Unknown]
  - Goitre [Unknown]
  - Ankle fracture [Unknown]
  - Muscular weakness [Unknown]
  - Cardiac disorder [Unknown]
